FAERS Safety Report 18476142 (Version 1)
Quarter: 2020Q4

REPORT INFORMATION
  Report Type: Spontaneous
  Country: PT (occurrence: PT)
  Receive Date: 20201106
  Receipt Date: 20201106
  Transmission Date: 20210114
  Serious: Yes (Hospitalization, Other)
  Sender: FDA-Public Use
  Company Number: PT-HIKMA PHARMACEUTICALS USA INC.-PT-H14001-20-52538

PATIENT
  Age: 78 Year
  Sex: Female

DRUGS (1)
  1. AMIODARONE [Suspect]
     Active Substance: AMIODARONE
     Indication: ATRIAL FIBRILLATION
     Route: 023

REACTIONS (11)
  - Respiratory failure [Unknown]
  - Dyspnoea [Unknown]
  - Inflammation [Unknown]
  - Pleuritic pain [Unknown]
  - Sputum purulent [Unknown]
  - Productive cough [Unknown]
  - Condition aggravated [Unknown]
  - Pneumonia [Unknown]
  - Organising pneumonia [Unknown]
  - Influenza like illness [Unknown]
  - Lung infiltration [Unknown]
